FAERS Safety Report 15048788 (Version 2)
Quarter: 2018Q3

REPORT INFORMATION
  Report Type: Spontaneous
  Country: US (occurrence: US)
  Receive Date: 20180622
  Receipt Date: 20180912
  Transmission Date: 20181010
  Serious: No
  Sender: FDA-Public Use
  Company Number: US-PFIZER INC-2018252658

PATIENT
  Age: 61 Year
  Sex: Female
  Weight: 59 kg

DRUGS (6)
  1. PREGABALIN. [Suspect]
     Active Substance: PREGABALIN
     Indication: SPINAL FUSION SURGERY
  2. PREGABALIN. [Suspect]
     Active Substance: PREGABALIN
     Indication: MULTIPLE SCLEROSIS
     Dosage: 300 MG, DAILY (100 MG, ONE IN THE MORNING AND THEN SHE WOULD TAKE TWO AT NIGHT)
     Route: 048
  3. PREGABALIN. [Suspect]
     Active Substance: PREGABALIN
     Indication: PERIPHERAL NERVE INJURY
  4. LYRICA [Suspect]
     Active Substance: PREGABALIN
     Indication: MULTIPLE SCLEROSIS
     Dosage: 300 MG, DAILY (100 MG, ONE IN THE MORNING AND THEN SHE WOULD TAKE TWO AT NIGHT)
     Route: 048
  5. LYRICA [Suspect]
     Active Substance: PREGABALIN
     Indication: SPINAL FUSION SURGERY
  6. LYRICA [Suspect]
     Active Substance: PREGABALIN
     Indication: PERIPHERAL NERVE INJURY

REACTIONS (2)
  - Fall [Unknown]
  - Gait disturbance [Unknown]
